FAERS Safety Report 7006103-X (Version None)
Quarter: 2010Q3

REPORT INFORMATION
  Report Type: 
  Country: None (occurrence: None)
  Receive Date: 20100921
  Receipt Date: 20100913
  Transmission Date: 20110219
  Serious: Yes (Other)
  Sender: FDA-Public Use
  Company Number: BR-PFIZER INC-2010115448

PATIENT
  Sex: Female

DRUGS (1)
  1. CHAMPIX [Suspect]
     Dosage: UNK
     Route: 048
     Dates: start: 20100801, end: 20100101

REACTIONS (23)
  - ABDOMINAL DISTENSION [None]
  - ABDOMINAL PAIN [None]
  - ANXIETY [None]
  - BLADDER PAIN [None]
  - BLOOD PRESSURE INCREASED [None]
  - BLOOD URINE PRESENT [None]
  - DEPRESSION [None]
  - FEAR [None]
  - FEELING OF DESPAIR [None]
  - FREQUENT BOWEL MOVEMENTS [None]
  - IRRITABILITY [None]
  - LARYNGITIS [None]
  - MALAISE [None]
  - MOUTH HAEMORRHAGE [None]
  - NEGATIVE THOUGHTS [None]
  - PANIC DISORDER [None]
  - PHARYNGITIS [None]
  - POLLAKIURIA [None]
  - PYURIA [None]
  - STOMATITIS [None]
  - SUICIDAL IDEATION [None]
  - TREMOR [None]
  - URETHRAL PAIN [None]
